FAERS Safety Report 7396485-1 (Version None)
Quarter: 2011Q2

REPORT INFORMATION
  Report Type: 
  Country: None (occurrence: None)
  Receive Date: 20110406
  Receipt Date: 20101019
  Transmission Date: 20111010
  Serious: Yes (Hospitalization, Other)
  Sender: FDA-Public Use
  Company Number: US-BAYER-201031331NA

PATIENT
  Sex: Female
  Weight: 117.91 kg

DRUGS (11)
  1. ZOCOR [Concomitant]
  2. LISINOPRIL [Concomitant]
     Dosage: 10 MG, QD
  3. METFORMIN [Concomitant]
  4. ADVAIR DISKUS 100/50 [Concomitant]
     Dosage: 250 UNK, UNK
  5. PREVACID [Concomitant]
     Dosage: 30 MG, QD
  6. HYDROCHLOROTHIAZIDE [Concomitant]
     Dosage: 12.5 MG, QD
  7. YASMIN [Suspect]
     Indication: MENSTRUATION IRREGULAR
     Dosage: UNK
     Dates: start: 20020101, end: 20080101
  8. PLAVIX [Concomitant]
  9. YAZ [Suspect]
     Indication: MENSTRUATION IRREGULAR
     Dosage: UNK
     Dates: start: 20020101, end: 20080101
  10. GLIPIZIDE [Concomitant]
     Dosage: 5 MG, QD
  11. ZOLOFT [Concomitant]
     Dosage: 200 MG, QD

REACTIONS (2)
  - INJURY [None]
  - ACUTE MYOCARDIAL INFARCTION [None]
